FAERS Safety Report 14631950 (Version 2)
Quarter: 2019Q1

REPORT INFORMATION
  Report Type: Spontaneous
  Country: NL (occurrence: NL)
  Receive Date: 20180313
  Receipt Date: 20190222
  Transmission Date: 20190417
  Serious: Yes (Other)
  Sender: FDA-Public Use
  Company Number: NL-009507513-1802NLD009422

PATIENT
  Age: 73 Year
  Sex: Male

DRUGS (3)
  1. SINEMET [Suspect]
     Active Substance: CARBIDOPA\LEVODOPA
     Dosage: 1.5 TABLETS
     Route: 048
  2. SINEMET CR [Suspect]
     Active Substance: CARBIDOPA\LEVODOPA
     Indication: PARKINSON^S DISEASE
     Dosage: UNK
     Route: 048
  3. SINEMET [Suspect]
     Active Substance: CARBIDOPA\LEVODOPA
     Indication: PARKINSON^S DISEASE
     Dosage: 2 DF, 5 TIMES PER DAY (12.5/50)
     Route: 048

REACTIONS (10)
  - Drug effect decreased [Unknown]
  - Product prescribing error [Unknown]
  - Wrong technique in product usage process [Unknown]
  - Adverse event [Unknown]
  - Hypotension [Unknown]
  - Parkinson^s disease [Unknown]
  - Hyperkinesia [Unknown]
  - Product quality issue [Unknown]
  - Deep brain stimulation [Unknown]
  - Pallor [Unknown]

NARRATIVE: CASE EVENT DATE: 2018
